FAERS Safety Report 7150577-0 (Version None)
Quarter: 2010Q4

REPORT INFORMATION
  Report Type: 
  Country: None (occurrence: None)
  Receive Date: 20101206
  Receipt Date: 20101206
  Transmission Date: 20110411
  Serious: No
  Sender: FDA-Public Use
  Company Number: None

PATIENT
  Sex: Male
  Weight: 77.1115 kg

DRUGS (1)
  1. DORZOLAMIDE [Suspect]
     Indication: GLAUCOMA
     Dosage: 1 DROP TWICE DAILY OPHTHALMIC
     Route: 047
     Dates: start: 20101001, end: 20101201

REACTIONS (1)
  - PRODUCT SUBSTITUTION ISSUE [None]
